FAERS Safety Report 20229701 (Version 1)
Quarter: 2021Q4

REPORT INFORMATION
  Report Type: Spontaneous
  Country: US (occurrence: US)
  Receive Date: 20211226
  Receipt Date: 20211226
  Transmission Date: 20220303
  Serious: No
  Sender: FDA-Public Use
  Company Number: US-SA-SAC20211223001173

PATIENT
  Age: 71 Year
  Sex: Male

DRUGS (7)
  1. DUPIXENT [Suspect]
     Active Substance: DUPILUMAB
     Indication: Asthma
     Dosage: 300 MG, QOW
     Route: 058
     Dates: start: 20211109
  2. ALLOPURINOL [Concomitant]
     Active Substance: ALLOPURINOL
  3. EZETIMIBE [Concomitant]
     Active Substance: EZETIMIBE
  4. FENOFIBRATE [Concomitant]
     Active Substance: FENOFIBRATE
  5. LOSARTAN [Concomitant]
     Active Substance: LOSARTAN
     Dosage: 50-12.5
  6. METFORMIN [Concomitant]
     Active Substance: METFORMIN HYDROCHLORIDE
  7. ZYRTEC [Concomitant]
     Active Substance: CETIRIZINE HYDROCHLORIDE

REACTIONS (1)
  - Impaired quality of life [Unknown]
